FAERS Safety Report 7038421-3 (Version None)
Quarter: 2010Q4

REPORT INFORMATION
  Report Type: 
  Country: None (occurrence: None)
  Receive Date: 20101011
  Receipt Date: 20100209
  Transmission Date: 20110411
  Serious: Yes (Other)
  Sender: FDA-Public Use
  Company Number: US-PFIZER INC-2010018471

PATIENT
  Sex: Male

DRUGS (3)
  1. NEURONTIN [Suspect]
     Indication: NEUROPATHY PERIPHERAL
     Dosage: UNK, DAILY
     Dates: start: 20091208, end: 20091212
  2. CELEXA [Concomitant]
     Dosage: UNK
  3. VICODIN [Concomitant]
     Dosage: UNK

REACTIONS (1)
  - APHASIA [None]
